FAERS Safety Report 8357410-X (Version None)
Quarter: 2012Q2

REPORT INFORMATION
  Report Type: 
  Country: None (occurrence: None)
  Receive Date: 20120514
  Receipt Date: 20120502
  Transmission Date: 20120825
  Serious: Yes (Hospitalization)
  Sender: FDA-Public Use
  Company Number: CH-ROCHE-1065501

PATIENT
  Age: 81 Year
  Sex: Female

DRUGS (6)
  1. AMLODIPINE BESYLATE [Concomitant]
     Route: 048
     Dates: start: 20061002
  2. ORFEN [Concomitant]
     Dates: start: 20111031, end: 20120202
  3. SYMBICORT [Concomitant]
     Dosage: 2 PUFFS DAILY
     Dates: start: 20090924
  4. XARELTO [Concomitant]
     Route: 048
     Dates: start: 20120202
  5. HERCEPTIN [Suspect]
     Indication: BREAST CANCER
     Dosage: LAST DOSE PRIOR TO ADVERSE EVENT 12/JAN/2012
     Route: 042
     Dates: start: 20051011
  6. PANTOPRAZOLE [Concomitant]
     Route: 048
     Dates: start: 20111031

REACTIONS (1)
  - ARTHRITIS [None]
